FAERS Safety Report 4439957-1 (Version None)
Quarter: 2004Q3

REPORT INFORMATION
  Report Type: 
  Country: None (occurrence: None)
  Receive Date: 20040831
  Receipt Date: 20040608
  Transmission Date: 20050211
  Serious: No
  Sender: FDA-Public Use
  Company Number: 701830

PATIENT
  Age: 69 Year
  Sex: Female
  Weight: 83.9154 kg

DRUGS (15)
  1. AMEVIVE [Suspect]
     Indication: PSORIASIS
     Dosage: 15 MG QW IM
     Route: 030
     Dates: start: 20040318, end: 20040405
  2. AMEVIVE [Suspect]
     Indication: PSORIASIS
     Dosage: 15 MG QW IM
     Route: 030
     Dates: start: 20040429
  3. COUMADIN [Concomitant]
  4. ALDACTONE [Concomitant]
  5. BEXTRA [Concomitant]
  6. DIGITEK [Concomitant]
  7. DILTIAZEM [Concomitant]
  8. DITROPAN XL [Concomitant]
  9. FAMOTIDINE [Concomitant]
  10. FOSAMAX [Concomitant]
  11. FUROSEMIDE [Concomitant]
  12. LEXAPRO [Concomitant]
  13. LIPITOR [Concomitant]
  14. LISINOPRIL [Concomitant]
  15. PREMARIN [Concomitant]

REACTIONS (2)
  - INTERNATIONAL NORMALISED RATIO INCREASED [None]
  - PROTHROMBIN TIME PROLONGED [None]
